FAERS Safety Report 19449870 (Version 1)
Quarter: 2021Q2

REPORT INFORMATION
  Report Type: Spontaneous
  Country: FR (occurrence: FR)
  Receive Date: 20210622
  Receipt Date: 20210622
  Transmission Date: 20210717
  Serious: Yes (Hospitalization, Other)
  Sender: FDA-Public Use
  Company Number: FR-B.I. PHARMACEUTICALS,INC./RIDGEFIELD-2021-BI-110433

PATIENT
  Sex: Male

DRUGS (1)
  1. CATAPRESSAN [Suspect]
     Active Substance: CLONIDINE
     Indication: DRUG WITHDRAWAL MAINTENANCE THERAPY
     Dosage: SOLUTION INJECTABLE
     Dates: start: 20210516, end: 20210516

REACTIONS (3)
  - Product administration error [Recovered/Resolved]
  - Apnoea [Recovered/Resolved]
  - Somnolence [Recovered/Resolved]

NARRATIVE: CASE EVENT DATE: 20210516
